FAERS Safety Report 6066402-5 (Version None)
Quarter: 2009Q1

REPORT INFORMATION
  Report Type: 
  Country: None (occurrence: None)
  Receive Date: 20090205
  Receipt Date: 20090126
  Transmission Date: 20090719
  Serious: Yes (Hospitalization, Other)
  Sender: FDA-Public Use
  Company Number: JP-PFIZER INC-2009150367

PATIENT

DRUGS (9)
  1. HYSRON [Suspect]
     Indication: BREAST CANCER METASTATIC
     Dosage: 400 MG, 1X/DAY
     Route: 048
     Dates: start: 20080918
  2. XELODA [Concomitant]
     Dosage: UNK
     Dates: start: 20080207
  3. OXYCONTIN [Concomitant]
     Dosage: UNK
  4. PRIMPERAN TAB [Concomitant]
     Dosage: UNK
  5. ALENDRONATE SODIUM [Concomitant]
     Dosage: UNK
     Route: 048
     Dates: start: 20080604
  6. NOVAMIN [Concomitant]
     Dosage: UNK
     Route: 048
     Dates: start: 20070208, end: 20081009
  7. POLARAMINE [Concomitant]
     Dosage: UNK
     Route: 048
     Dates: start: 20070222, end: 20081009
  8. LOXONIN [Concomitant]
     Dosage: UNK
     Route: 048
     Dates: start: 20070111
  9. RISEDRONATE SODIUM HYDRATE [Concomitant]
     Dosage: UNK
     Route: 048
     Dates: start: 20070902, end: 20080501

REACTIONS (5)
  - DYSKINESIA [None]
  - FALL [None]
  - GAIT DISTURBANCE [None]
  - HEADACHE [None]
  - THIRST [None]
